FAERS Safety Report 8297791-9 (Version None)
Quarter: 2012Q1

REPORT INFORMATION
  Report Type: 
  Country: None (occurrence: None)
  Receive Date: 20120323
  Receipt Date: 20101123
  Transmission Date: 20120608
  Serious: Yes (Hospitalization)
  Sender: FDA-Public Use
  Company Number: PHHY2010US80923

PATIENT
  Age: 85 Year
  Sex: Female

DRUGS (1)
  1. TOBI [Suspect]
     Indication: CYSTIC FIBROSIS
     Dosage: 300 MG, 1 AMP BID IN CYCLE 2 WEEKS ON AND 2 WEEKS OFF, INHALATION
     Route: 055
     Dates: start: 20091201

REACTIONS (1)
  - PNEUMONIA [None]
